FAERS Safety Report 6088816-X (Version None)
Quarter: 2009Q1

REPORT INFORMATION
  Report Type: 
  Country: None (occurrence: None)
  Receive Date: 20090220
  Receipt Date: 20090220
  Transmission Date: 20090719
  Serious: No
  Sender: FDA-Public Use
  Company Number: None

PATIENT
  Sex: Female
  Weight: 77.1115 kg

DRUGS (1)
  1. SYNTHROID [Suspect]

REACTIONS (5)
  - ALOPECIA [None]
  - ANOREXIA [None]
  - NERVOUSNESS [None]
  - NIGHT SWEATS [None]
  - PALPITATIONS [None]
